FAERS Safety Report 14034293 (Version 1)
Quarter: 2017Q4

REPORT INFORMATION
  Report Type: Report from Study
  Country: US (occurrence: US)
  Receive Date: 20171003
  Receipt Date: 20171003
  Transmission Date: 20180321
  Serious: Yes (Life-Threatening)
  Sender: FDA-Public Use
  Company Number: US-ROCHE-1925694

PATIENT

DRUGS (2)
  1. RIBAVIRIN. [Suspect]
     Active Substance: RIBAVIRIN
     Indication: HEPATITIS C
     Route: 065
  2. PEG-INTERFERON ALFA 2A [Suspect]
     Active Substance: PEGINTERFERON ALFA-2A
     Indication: HEPATITIS C
     Route: 065

REACTIONS (10)
  - Depression [Unknown]
  - Neutropenia [Unknown]
  - Anaemia [Unknown]
  - Anger [Unknown]
  - Insomnia [Unknown]
  - Anxiety [Unknown]
  - Back pain [Unknown]
  - Haemoglobin decreased [Unknown]
  - Humerus fracture [Unknown]
  - Platelet count decreased [Unknown]
